FAERS Safety Report 20043503 (Version 1)
Quarter: 2021Q4

REPORT INFORMATION
  Report Type: Spontaneous
  Country: US (occurrence: US)
  Receive Date: 20211108
  Receipt Date: 20211108
  Transmission Date: 20220303
  Serious: No
  Sender: FDA-Public Use
  Company Number: US-SA-SAC20211103000099

PATIENT
  Sex: Male

DRUGS (2)
  1. DUPIXENT [Suspect]
     Active Substance: DUPILUMAB
     Indication: Dermatitis atopic
     Dosage: 300 MG, QOW
     Route: 058
  2. AMOXICILLIN/CLAVULANIC ACID [AMOXICILLIN TRIHYDRATE;CLAVULANATE POTASS [Concomitant]

REACTIONS (2)
  - Dermatitis atopic [Unknown]
  - Off label use [Unknown]
